FAERS Safety Report 5388117-9 (Version None)
Quarter: 2007Q3

REPORT INFORMATION
  Report Type: 
  Country: None (occurrence: None)
  Receive Date: 20070716
  Receipt Date: 20061201
  Transmission Date: 20080115
  Serious: No
  Sender: FDA-Public Use
  Company Number: A0629621A

PATIENT
  Sex: Female

DRUGS (1)
  1. NICORETTE [Suspect]

REACTIONS (9)
  - ALOPECIA [None]
  - INTENTIONAL DRUG MISUSE [None]
  - MEMORY IMPAIRMENT [None]
  - MENTAL IMPAIRMENT [None]
  - PAIN IN EXTREMITY [None]
  - PARAESTHESIA [None]
  - PHARMACEUTICAL PRODUCT COMPLAINT [None]
  - PRURITUS GENERALISED [None]
  - VEIN PAIN [None]
